FAERS Safety Report 22596805 (Version 2)
Quarter: 2023Q2

REPORT INFORMATION
  Report Type: Spontaneous
  Country: DE (occurrence: DE)
  Receive Date: 20230613
  Receipt Date: 20230630
  Transmission Date: 20230722
  Serious: Yes (Hospitalization, Other)
  Sender: FDA-Public Use
  Company Number: DE-JAZZ PHARMACEUTICALS-2023-DE-012593

PATIENT
  Age: 13 Year
  Sex: Male

DRUGS (13)
  1. CANNABIDIOL [Suspect]
     Active Substance: CANNABIDIOL
     Indication: Lennox-Gastaut syndrome
     Dosage: 400 MILLIGRAM, BID
     Dates: start: 20220919
  2. CANNABIDIOL [Suspect]
     Active Substance: CANNABIDIOL
     Indication: Generalised tonic-clonic seizure
  3. CANNABIDIOL [Suspect]
     Active Substance: CANNABIDIOL
     Indication: Petit mal epilepsy
  4. CANNABIDIOL [Suspect]
     Active Substance: CANNABIDIOL
     Indication: Developmental delay
  5. CANNABIDIOL [Suspect]
     Active Substance: CANNABIDIOL
     Indication: Dementia
  6. CANNABIDIOL [Suspect]
     Active Substance: CANNABIDIOL
     Indication: Tooth injury
  7. CLOBAZAM [Suspect]
     Active Substance: CLOBAZAM
     Indication: Product used for unknown indication
  8. OXCARBAZEPINE [Concomitant]
     Active Substance: OXCARBAZEPINE
     Indication: Product used for unknown indication
  9. MELATONIN [Concomitant]
     Active Substance: MELATONIN
     Indication: Product used for unknown indication
  10. CHOLECALCIFEROL [Concomitant]
     Active Substance: CHOLECALCIFEROL
     Indication: Product used for unknown indication
  11. VALPROIC ACID [Concomitant]
     Active Substance: VALPROIC ACID
     Indication: Product used for unknown indication
  12. LEVETIRACETAM [Concomitant]
     Active Substance: LEVETIRACETAM
     Indication: Product used for unknown indication
  13. POLYETHYLENE GLYCOL 3350 [Concomitant]
     Active Substance: POLYETHYLENE GLYCOL 3350
     Indication: Product used for unknown indication

REACTIONS (14)
  - Hospitalisation [Unknown]
  - Seizure [Unknown]
  - Poverty of speech [Unknown]
  - Tremor [Unknown]
  - Myoclonus [Unknown]
  - Eating disorder [Unknown]
  - Gait disturbance [Unknown]
  - Agitation [Unknown]
  - Weight increased [Unknown]
  - Drug interaction [Unknown]
  - Liquid product physical issue [Unknown]
  - Off label use [Unknown]
  - Product quality issue [Unknown]
  - Drug ineffective [Unknown]

NARRATIVE: CASE EVENT DATE: 20220901
